FAERS Safety Report 16802811 (Version 3)
Quarter: 2019Q4

REPORT INFORMATION
  Report Type: Spontaneous
  Country: BR (occurrence: BR)
  Receive Date: 20190912
  Receipt Date: 20191209
  Transmission Date: 20200122
  Serious: Yes (Other)
  Sender: FDA-Public Use
  Company Number: BR-AMGEN-BRASP2019149135

PATIENT
  Age: 76 Year
  Sex: Female

DRUGS (2)
  1. ENBREL [Suspect]
     Active Substance: ETANERCEPT
     Indication: PRODUCT USED FOR UNKNOWN INDICATION
     Dosage: UNK
     Route: 065
     Dates: start: 2017
  2. ENBREL [Suspect]
     Active Substance: ETANERCEPT
     Dosage: UNK
     Route: 065
     Dates: start: 201907

REACTIONS (11)
  - Renal disorder [Recovered/Resolved]
  - Injection site haematoma [Unknown]
  - Fall [Unknown]
  - Depression [Unknown]
  - Injection site pain [Unknown]
  - Mobility decreased [Recovering/Resolving]
  - Rheumatoid arthritis [Unknown]
  - Rib fracture [Unknown]
  - Facial bones fracture [Unknown]
  - Dyspnoea [Unknown]
  - Asthenia [Unknown]

NARRATIVE: CASE EVENT DATE: 2019
